FAERS Safety Report 19803948 (Version 1)
Quarter: 2021Q3

REPORT INFORMATION
  Report Type: Report from Study
  Country: EG (occurrence: EG)
  Receive Date: 20210908
  Receipt Date: 20210908
  Transmission Date: 20211014
  Serious: Yes (Other)
  Sender: FDA-Public Use
  Company Number: EG-MYLANLABS-2021M1059599

PATIENT
  Age: 39 Year
  Sex: Female

DRUGS (14)
  1. VINCRISTINE [Suspect]
     Active Substance: VINCRISTINE
     Dosage: 1.4 MILLIGRAM/SQ. METER, PHASE II INDUCTION AND CNS THERAPY; ON DAY 1 FOR 3 WEEKS
     Route: 042
  2. 6?MERCAPTOPURINE MONOHYDRATE [Suspect]
     Active Substance: MERCAPTOPURINE
     Indication: B PRECURSOR TYPE ACUTE LEUKAEMIA
     Dosage: 50 MILLIGRAM/SQ. METER, PHASE II INDUCTION AND CNS THERAPY; ON DAY 1?14 FOR 3 WEEKS
     Route: 048
  3. VINCRISTINE [Suspect]
     Active Substance: VINCRISTINE
     Indication: B PRECURSOR TYPE ACUTE LEUKAEMIA
     Dosage: 1.4 MILLIGRAM/SQ. METER, PHASE I INDUCTION THERAPY; ON DAY 1, 8, 15, 22 FOR 4 WEEKS
     Route: 042
  4. CYTARABINE. [Suspect]
     Active Substance: CYTARABINE
     Dosage: 40 MILLIGRAM, PHASE II INDUCTION AND CNS THERAPY; ON DAY 1,4,8 AND 11 FOR 3 WEEKS
     Route: 037
  5. HYDROCORTISONE. [Suspect]
     Active Substance: HYDROCORTISONE
     Indication: B PRECURSOR TYPE ACUTE LEUKAEMIA
     Dosage: 15 MILLIGRAM, PHASE I INDUCTION THERAPY; ON DAY 15 AND DAY 29 FOR 4 WEEKS
     Route: 037
  6. METHOTREXATE. [Suspect]
     Active Substance: METHOTREXATE
     Indication: B PRECURSOR TYPE ACUTE LEUKAEMIA
     Dosage: PHASE I INDUCTION THERAPY; 1.5 G/M2 ON DAY 3 FOR 4 WEEKS
     Route: 042
  7. L?ASPARAGINASE [Suspect]
     Active Substance: ASPARAGINASE
     Indication: B PRECURSOR TYPE ACUTE LEUKAEMIA
     Dosage: PHASE I INDUCTION THERAPY; 25000IU/M2 ON DAY 5 FOR 4 WEEKS
     Route: 030
  8. CYTARABINE. [Suspect]
     Active Substance: CYTARABINE
     Indication: B PRECURSOR TYPE ACUTE LEUKAEMIA
     Dosage: 40 MILLIGRAM, PHASE I INDUCTION THERAPY?
     Route: 037
  9. METHOTREXATE. [Suspect]
     Active Substance: METHOTREXATE
     Indication: B PRECURSOR TYPE ACUTE LEUKAEMIA
     Dosage: 12 MILLIGRAM, PHASE I INDUCTION THERAPY; DAY 15 AND 29 FOR 4 WEEKS
     Route: 037
  10. DOXORUBICIN [Suspect]
     Active Substance: DOXORUBICIN
     Dosage: 30 MILLIGRAM/SQ. METER, PHASE II INDUCTION AND CNS THERAPY; ON DAY 1 FOR 3 WEEKS
     Route: 042
  11. PREDNISONE. [Suspect]
     Active Substance: PREDNISONE
     Indication: B PRECURSOR TYPE ACUTE LEUKAEMIA
     Dosage: 40 MILLIGRAM/SQ. METER, PHASE I INDUCTION THERAPY; FROM DAY 1?29 FOR 4 WEEKS
     Route: 048
  12. METHOTREXATE. [Suspect]
     Active Substance: METHOTREXATE
     Dosage: 12 MILLIGRAM, PHASE II INDUCTION AND CNS THERAPY; ON DAY 1,4,8 AND 11 FOR 3 WEEKS
     Route: 037
  13. DOXORUBICIN [Suspect]
     Active Substance: DOXORUBICIN
     Indication: B PRECURSOR TYPE ACUTE LEUKAEMIA
     Dosage: 30 MILLIGRAM/SQ. METER, PHASE I INDUCTION THERAPY; ON DAY 1 AND DAY 2 FOR 4 WEEKS
     Route: 042
  14. HYDROCORTISONE. [Suspect]
     Active Substance: HYDROCORTISONE
     Dosage: 15 MILLIGRAM, PHASE II INDUCTION AND CNS THERAPY; ON DAY 1,4,8 AND 11 FOR 3 WEEKS
     Route: 037

REACTIONS (2)
  - Neutropenia [Unknown]
  - Drug ineffective [Unknown]
